FAERS Safety Report 16312386 (Version 1)
Quarter: 2019Q2

REPORT INFORMATION
  Report Type: Spontaneous
  Country: HK (occurrence: HK)
  Receive Date: 20190515
  Receipt Date: 20190515
  Transmission Date: 20190711
  Serious: Yes (Other)
  Sender: FDA-Public Use
  Company Number: HK-SA-2019SA128211

PATIENT
  Sex: Male

DRUGS (1)
  1. LEMTRADA [Suspect]
     Active Substance: ALEMTUZUMAB
     Dosage: UNK
     Route: 041
     Dates: start: 201903

REACTIONS (9)
  - Chest X-ray abnormal [Unknown]
  - Red blood cell sedimentation rate increased [Unknown]
  - Computerised tomogram abnormal [Unknown]
  - Bronchiectasis [Not Recovered/Not Resolved]
  - Dyspnoea [Unknown]
  - Pneumonitis [Not Recovered/Not Resolved]
  - Pyrexia [Unknown]
  - Cough [Unknown]
  - C-reactive protein increased [Unknown]
